FAERS Safety Report 7919477-X (Version None)
Quarter: 2011Q4

REPORT INFORMATION
  Report Type: 
  Country: None (occurrence: None)
  Receive Date: 20111117
  Receipt Date: 20111114
  Transmission Date: 20120403
  Serious: No
  Sender: FDA-Public Use
  Company Number: US-PFIZER INC-2011279553

PATIENT
  Sex: Male

DRUGS (5)
  1. PRAVACHOL [Suspect]
     Dosage: UNK
  2. LIPITOR [Suspect]
     Dosage: 5 MG, UNK
     Dates: start: 20100101
  3. CO-Q-10 [Suspect]
     Dosage: UNK
  4. LIPITOR [Suspect]
     Dosage: 10MG, UNK
     Dates: end: 20110501
  5. ZOCOR [Suspect]
     Dosage: UNK

REACTIONS (5)
  - ASTHENIA [None]
  - MUSCULOSKELETAL PAIN [None]
  - NECK PAIN [None]
  - BLOOD CHOLESTEROL INCREASED [None]
  - MYALGIA [None]
